FAERS Safety Report 9030548 (Version 1)
Quarter: 2013Q1

REPORT INFORMATION
  Report Type: Spontaneous
  Country: IT (occurrence: IT)
  Receive Date: 20130122
  Receipt Date: 20130122
  Transmission Date: 20140127
  Serious: Yes (Other)
  Sender: FDA-Public Use
  Company Number: IT-ASTRAZENECA-2013SE02297

PATIENT
  Age: 14738 Day
  Sex: Female

DRUGS (1)
  1. LIDOCAINE [Suspect]
     Route: 030
     Dates: start: 20121218, end: 20121218

REACTIONS (9)
  - Feeling hot [Unknown]
  - Headache [Unknown]
  - Malaise [Unknown]
  - Presyncope [Unknown]
  - Band sensation [Unknown]
  - Paraesthesia [Unknown]
  - Syncope [Unknown]
  - Discomfort [Unknown]
  - Hot flush [Unknown]
